FAERS Safety Report 13745439 (Version 1)
Quarter: 2017Q3

REPORT INFORMATION
  Report Type: Spontaneous
  Country: US (occurrence: US)
  Receive Date: 20170712
  Receipt Date: 20170712
  Transmission Date: 20171127
  Serious: No
  Sender: FDA-Public Use
  Company Number: US-ASTRAZENECA-2017SE70996

PATIENT
  Age: 59 Year
  Sex: Male

DRUGS (3)
  1. SYMBICORT [Suspect]
     Active Substance: BUDESONIDE\FORMOTEROL FUMARATE DIHYDRATE
     Indication: CHRONIC OBSTRUCTIVE PULMONARY DISEASE
     Dosage: 160/4.5 MCG, 2 PUFFS TWICE DAILY
     Route: 055
  2. SYMBICORT [Suspect]
     Active Substance: BUDESONIDE\FORMOTEROL FUMARATE DIHYDRATE
     Indication: PULMONARY OEDEMA
     Dosage: 160/4.5 MCG, 2 PUFFS TWICE DAILY
     Route: 055
  3. PROAIR HFA [Concomitant]
     Active Substance: ALBUTEROL SULFATE

REACTIONS (7)
  - Product use in unapproved indication [Unknown]
  - Chest pain [Unknown]
  - Lung disorder [Unknown]
  - Chronic obstructive pulmonary disease [Unknown]
  - Drug dose omission [Unknown]
  - Off label use [Unknown]
  - Pneumonia [Unknown]

NARRATIVE: CASE EVENT DATE: 2015
